FAERS Safety Report 4424241-2 (Version None)
Quarter: 2004Q3

REPORT INFORMATION
  Report Type: 
  Country: None (occurrence: None)
  Receive Date: 20040810
  Receipt Date: 20040810
  Transmission Date: 20050211
  Serious: Yes (Other)
  Sender: FDA-Public Use
  Company Number: None

PATIENT
  Sex: Male
  Weight: 43 kg

DRUGS (1)
  1. DESFUROXAMINE [Suspect]
     Indication: THALASSAEMIA
     Dosage: 3000 MG 5X / WK SC
     Route: 058
     Dates: start: 19930101

REACTIONS (1)
  - URTICARIA [None]
